FAERS Safety Report 23443835 (Version 4)
Quarter: 2024Q1

REPORT INFORMATION
  Report Type: Report from Study
  Country: DE (occurrence: DE)
  Receive Date: 20240125
  Receipt Date: 20240216
  Transmission Date: 20240410
  Serious: Yes (Other)
  Sender: FDA-Public Use
  Company Number: DE-PFM-2024-00349

PATIENT
  Age: 65 Year
  Sex: Female

DRUGS (40)
  1. ENCORAFENIB [Suspect]
     Active Substance: ENCORAFENIB
     Indication: Malignant melanoma
     Dosage: 450 MG, QD (1/DAY)
     Route: 048
     Dates: start: 20230720, end: 20230926
  2. ENCORAFENIB [Suspect]
     Active Substance: ENCORAFENIB
     Dosage: 450 MG, QD (1/DAY)
     Route: 048
     Dates: start: 20231006
  3. ENCORAFENIB [Suspect]
     Active Substance: ENCORAFENIB
     Dosage: 300 MG, QD (1/DAY)
     Route: 048
     Dates: start: 20231124, end: 20231124
  4. ENCORAFENIB [Suspect]
     Active Substance: ENCORAFENIB
     Dosage: UNK
     Route: 048
     Dates: end: 20231128
  5. ENCORAFENIB [Suspect]
     Active Substance: ENCORAFENIB
     Dosage: 450 MG, QD (1/DAY)
     Route: 048
     Dates: start: 20231214, end: 20231228
  6. BINIMETINIB [Suspect]
     Active Substance: BINIMETINIB
     Indication: Malignant melanoma
     Dosage: 45 MG, BID (2/DAY)
     Route: 048
     Dates: start: 20230720, end: 20230926
  7. BINIMETINIB [Suspect]
     Active Substance: BINIMETINIB
     Dosage: 45 MG, BID (2/DAY)
     Route: 048
     Dates: start: 20231006, end: 20231124
  8. BINIMETINIB [Suspect]
     Active Substance: BINIMETINIB
     Dosage: 45 MG, BID (2/DAY)
     Route: 048
     Dates: end: 20231127
  9. BINIMETINIB [Suspect]
     Active Substance: BINIMETINIB
     Dosage: 45 MG, BID (2/DAY)
     Route: 048
     Dates: start: 20231214, end: 20231228
  10. HYDROMORPHONE [Concomitant]
     Active Substance: HYDROMORPHONE
     Indication: Malignant melanoma
     Dosage: UNK
     Route: 065
     Dates: start: 20230715, end: 20230809
  11. SIMETICON [Concomitant]
     Indication: Abdominal distension
     Dosage: UNK
     Route: 065
     Dates: start: 20230721, end: 202307
  12. PREDNISOLONE [Concomitant]
     Active Substance: PREDNISOLONE
     Indication: Hepatitis
     Dosage: UNK
     Route: 065
     Dates: start: 20230801, end: 20230918
  13. PREDNISOLONE [Concomitant]
     Active Substance: PREDNISOLONE
     Dosage: UNK
     Route: 065
     Dates: start: 20231002, end: 20231024
  14. PREDNISOLONE [Concomitant]
     Active Substance: PREDNISOLONE
     Dosage: UNK
     Route: 065
     Dates: start: 20231206, end: 20231230
  15. PARECOXIB SODIUM [Concomitant]
     Active Substance: PARECOXIB SODIUM
     Indication: Malignant melanoma
     Dosage: UNK
     Route: 065
     Dates: start: 20230717, end: 20230718
  16. ENOXAPARIN SODIUM [Concomitant]
     Active Substance: ENOXAPARIN SODIUM
     Indication: Prophylaxis
     Dosage: UNK
     Route: 065
     Dates: start: 20230714, end: 20230811
  17. ENOXAPARIN SODIUM [Concomitant]
     Active Substance: ENOXAPARIN SODIUM
     Dosage: UNK
     Route: 065
     Dates: start: 20231129, end: 20231205
  18. METHYLPREDNISOLON [METHYLPREDNISOLONE SODIUM SUCCINATE] [Concomitant]
     Indication: Hepatitis
     Dosage: UNK
     Route: 065
     Dates: start: 20231130, end: 20231205
  19. BUDESONIDE [Concomitant]
     Active Substance: BUDESONIDE
     Indication: Hepatitis
     Dosage: UNK
     Route: 065
     Dates: start: 20231002, end: 202310
  20. MINOXICUTAN [Concomitant]
     Indication: Alopecia
     Dosage: UNK (FORMULATION: SPRAY)
     Route: 065
     Dates: start: 20231006, end: 202310
  21. POLIDOCANOL [Concomitant]
     Active Substance: POLIDOCANOL
     Indication: Hepatitis
     Dosage: UNK
     Route: 065
     Dates: start: 20231130
  22. GLYCERIN [Concomitant]
     Active Substance: GLYCERIN
     Dosage: UNK
     Route: 065
     Dates: start: 20230718, end: 20230718
  23. INFLIXIMAB [Concomitant]
     Active Substance: INFLIXIMAB
     Indication: Colitis
     Dosage: UNK
     Route: 065
     Dates: start: 20230808, end: 20230808
  24. HYDROCORTISONE [Concomitant]
     Active Substance: HYDROCORTISONE
     Indication: Hepatitis
     Dosage: UNK
     Route: 065
     Dates: start: 20231025, end: 20231128
  25. LOPERAMIDE [Concomitant]
     Active Substance: LOPERAMIDE
     Indication: Diarrhoea
     Dosage: UNK
     Route: 065
     Dates: start: 20230925, end: 20240110
  26. URSODIOL [Concomitant]
     Active Substance: URSODIOL
     Indication: Hepatitis
     Dosage: UNK
     Route: 065
     Dates: start: 20231002, end: 202310
  27. URSODIOL [Concomitant]
     Active Substance: URSODIOL
     Dosage: UNK
     Route: 065
     Dates: start: 20231130
  28. PANTOPRAZOLE SODIUM [Concomitant]
     Active Substance: PANTOPRAZOLE SODIUM
     Indication: Prophylaxis
     Dosage: UNK
     Route: 065
     Dates: start: 20230727, end: 20230812
  29. VALSARTAN [Concomitant]
     Active Substance: VALSARTAN
     Dosage: UNK
     Route: 065
     Dates: start: 20230712
  30. BISOPROLOL FUMARATE [Concomitant]
     Active Substance: BISOPROLOL FUMARATE
     Dosage: UNK
     Route: 065
  31. PREGABALIN [Concomitant]
     Active Substance: PREGABALIN
     Dosage: UNK
     Route: 065
     Dates: start: 20230720, end: 20230808
  32. MOXONIDINE [Concomitant]
     Active Substance: MOXONIDINE
     Dosage: UNK
     Route: 065
     Dates: start: 20230712, end: 20230811
  33. MIRTAZAPINE [Concomitant]
     Active Substance: MIRTAZAPINE
     Dosage: UNK
     Route: 065
     Dates: start: 20230712, end: 20230811
  34. POTASSIUM CHLORIDE [Concomitant]
     Active Substance: POTASSIUM CHLORIDE
     Dosage: UNK
     Route: 065
     Dates: start: 20230719, end: 20230812
  35. CHOLECALCIFEROL [Concomitant]
     Active Substance: CHOLECALCIFEROL
     Indication: Prophylaxis
     Dosage: UNK
     Route: 065
     Dates: start: 20230721
  36. AMLODIPINE MALEATE [Concomitant]
     Active Substance: AMLODIPINE MALEATE
     Dosage: UNK
     Route: 065
     Dates: start: 20230712
  37. SODIUM PICOSULFATE [Concomitant]
     Active Substance: SODIUM PICOSULFATE
     Dosage: UNK
     Route: 065
     Dates: start: 20230718, end: 20230720
  38. METAMIZOLE MAGNESIUM [Concomitant]
     Active Substance: METAMIZOLE MAGNESIUM
     Indication: Malignant melanoma
     Dosage: UNK
     Route: 065
     Dates: start: 202306, end: 20230812
  39. POLYETHYLENE GLYCOLS [Concomitant]
     Active Substance: POLYETHYLENE GLYCOLS
     Dosage: UNK
     Route: 065
     Dates: start: 20230718, end: 20230725
  40. METHYLPREDNISOLONE [Concomitant]
     Active Substance: METHYLPREDNISOLONE
     Dosage: UNK
     Route: 065
     Dates: start: 20230720, end: 20230725

REACTIONS (1)
  - Hepatitis [Recovered/Resolved]

NARRATIVE: CASE EVENT DATE: 20231221
